FAERS Safety Report 19836503 (Version 1)
Quarter: 2021Q3

REPORT INFORMATION
  Report Type: Spontaneous
  Country: GB (occurrence: GB)
  Receive Date: 20210916
  Receipt Date: 20210916
  Transmission Date: 20211014
  Serious: Yes (Hospitalization, Other)
  Sender: FDA-Public Use
  Company Number: GB-ALKEM LABORATORIES LIMITED-GB-ALKEM-2021-03917

PATIENT
  Age: 21 Year
  Sex: Male

DRUGS (8)
  1. PROCYCLIDINE [Concomitant]
     Active Substance: PROCYCLIDINE
     Indication: EXTRAPYRAMIDAL DISORDER
  2. QUETIAPINE FUMARATE. [Suspect]
     Active Substance: QUETIAPINE FUMARATE
     Indication: DISSOCIATIVE DISORDER
     Dosage: 50 MILLIGRAM, QD
     Route: 065
  3. HALOPERIDOL. [Suspect]
     Active Substance: HALOPERIDOL
     Indication: DISSOCIATIVE DISORDER
     Dosage: 5 MILLIGRAM, QD
     Route: 065
  4. LORAZEPAM. [Suspect]
     Active Substance: LORAZEPAM
     Indication: DISSOCIATIVE DISORDER
     Dosage: 1 MILLIGRAM, QID
     Route: 065
  5. SERTRALINE [Concomitant]
     Active Substance: SERTRALINE HYDROCHLORIDE
     Indication: DISSOCIATIVE DISORDER
     Dosage: 50 MILLIGRAM, QD
     Route: 065
  6. ARIPIPRAZOLE. [Suspect]
     Active Substance: ARIPIPRAZOLE
     Indication: DISSOCIATIVE DISORDER
     Dosage: 10 MILLIGRAM, QD
     Route: 065
  7. DIAZEPAM. [Suspect]
     Active Substance: DIAZEPAM
     Indication: DISSOCIATIVE DISORDER
     Dosage: 10 MILLIGRAM, TID
     Route: 065
  8. PROCYCLIDINE [Concomitant]
     Active Substance: PROCYCLIDINE
     Indication: MUSCULOSKELETAL STIFFNESS
     Dosage: 5 MILLIGRAM, TID
     Route: 065

REACTIONS (4)
  - Hyperprolactinaemia [Unknown]
  - Extrapyramidal disorder [Unknown]
  - Musculoskeletal stiffness [Unknown]
  - Drug ineffective [Unknown]
